FAERS Safety Report 20844086 (Version 1)
Quarter: 2022Q2

REPORT INFORMATION
  Report Type: Spontaneous
  Country: US (occurrence: US)
  Receive Date: 20220518
  Receipt Date: 20220518
  Transmission Date: 20220720
  Serious: No
  Sender: FDA-Public Use
  Company Number: US-BRISTOL-MYERS SQUIBB COMPANY-2022-026794

PATIENT
  Age: 90 Year
  Sex: Male

DRUGS (1)
  1. REVLIMID [Suspect]
     Active Substance: LENALIDOMIDE
     Indication: Refractory cytopenia with unilineage dysplasia
     Route: 048

REACTIONS (3)
  - Product dose omission issue [Unknown]
  - White blood cell count decreased [Unknown]
  - Intentional product use issue [Unknown]
